FAERS Safety Report 21324286 (Version 3)
Quarter: 2023Q2

REPORT INFORMATION
  Report Type: Spontaneous
  Country: JP (occurrence: JP)
  Receive Date: 20220912
  Receipt Date: 20230531
  Transmission Date: 20230721
  Serious: Yes (Death, Life-Threatening, Other)
  Sender: FDA-Public Use
  Company Number: JP-ONO-2022JP024977

PATIENT
  Age: 68 Year
  Sex: Male
  Weight: 60 kg

DRUGS (5)
  1. BRAFTOVI [Suspect]
     Active Substance: ENCORAFENIB
     Indication: Colon cancer
     Dosage: 300 MG, EVERYDAY
     Route: 048
     Dates: start: 20220819, end: 20220908
  2. MEKTOVI [Suspect]
     Active Substance: BINIMETINIB
     Indication: Colon cancer
     Dosage: 45 MG, Q12H
     Route: 048
     Dates: start: 20220819, end: 20220908
  3. ERBITUX [Concomitant]
     Active Substance: CETUXIMAB
     Indication: Colon cancer
     Dosage: 640 MG
     Route: 042
     Dates: start: 20220819, end: 20220819
  4. ERBITUX [Concomitant]
     Active Substance: CETUXIMAB
     Dosage: 400 MG
     Route: 042
     Dates: start: 20220826, end: 20220826
  5. ERBITUX [Concomitant]
     Active Substance: CETUXIMAB
     Dosage: 400 MG
     Route: 042
     Dates: start: 20220907, end: 20220907

REACTIONS (2)
  - Cardiac arrest [Fatal]
  - Nausea [Unknown]

NARRATIVE: CASE EVENT DATE: 20220828
